FAERS Safety Report 4317315-8 (Version None)
Quarter: 2004Q1

REPORT INFORMATION
  Report Type: 
  Country: None (occurrence: None)
  Receive Date: 20040312
  Receipt Date: 20040225
  Transmission Date: 20041129
  Serious: Yes (Other)
  Sender: FDA-Public Use
  Company Number: T04-GER-00879-01

PATIENT
  Age: 31 Year
  Sex: Female

DRUGS (2)
  1. CIPRALEX (ESCITALOPRAM) [Suspect]
     Indication: ANXIETY DISORDER
     Dosage: 10 MG QD PO
     Route: 048
     Dates: start: 20031120, end: 20031204
  2. CIPRALEX (ESCITALOPRAM) [Suspect]
     Indication: DEPRESSION
     Dosage: 10 MG QD PO
     Route: 048
     Dates: start: 20031120, end: 20031204

REACTIONS (8)
  - ANXIETY [None]
  - CONDITION AGGRAVATED [None]
  - CONVERSION DISORDER [None]
  - CRYING [None]
  - FEAR [None]
  - NAUSEA [None]
  - RESTLESSNESS [None]
  - TREMOR [None]
